FAERS Safety Report 6065888-X (Version None)
Quarter: 2009Q1

REPORT INFORMATION
  Report Type: 
  Country: None (occurrence: None)
  Receive Date: 20090205
  Receipt Date: 20090126
  Transmission Date: 20090719
  Serious: Yes (Other)
  Sender: FDA-Public Use
  Company Number: KR-TYCO HEALTHCARE/MALLINCKRODT-T200900117

PATIENT
  Age: 59 Year
  Sex: Male

DRUGS (4)
  1. SODIUM IODIDE I 131 [Suspect]
     Indication: RADIOACTIVE IODINE THERAPY
     Dosage: 400 MCI, SINGLE
  2. SODIUM IODIDE I 131 [Suspect]
     Dosage: 400 MCI, SINGLE
  3. SODIUM IODIDE I 131 [Suspect]
     Dosage: 400 MCI, SINGLE
  4. TRIIODOTHYRONINE [Concomitant]
     Indication: THYROID HORMONE REPLACEMENT THERAPY

REACTIONS (4)
  - ANAEMIA [None]
  - BONE LESION [None]
  - THROMBOCYTOPENIA [None]
  - THYROID DISORDER [None]
